FAERS Safety Report 23100346 (Version 1)
Quarter: 2023Q4

REPORT INFORMATION
  Report Type: Spontaneous
  Country: US (occurrence: None)
  Receive Date: 20231020
  Receipt Date: 20231020
  Transmission Date: 20240110
  Serious: Yes (Other)
  Sender: FDA-Public Use
  Company Number: None

PATIENT
  Age: 70 Year
  Sex: Male
  Weight: 76.95 kg

DRUGS (2)
  1. LEQVIO [Suspect]
     Active Substance: INCLISIRAN SODIUM
     Indication: Hyperlipidaemia
     Dosage: OTHER QUANTITY : 284MG/1.5ML;?OTHER FREQUENCY : Q6MONTHS;?
     Route: 058
     Dates: start: 20230913, end: 20230913
  2. NEXLETOL [Suspect]
     Active Substance: BEMPEDOIC ACID

REACTIONS (5)
  - Tachycardia [None]
  - Pain in extremity [None]
  - Peripheral swelling [None]
  - Skin discolouration [None]
  - Cellulitis gangrenous [None]

NARRATIVE: CASE EVENT DATE: 20230913
